FAERS Safety Report 14179425 (Version 2)
Quarter: 2017Q4

REPORT INFORMATION
  Report Type: Spontaneous
  Country: JP (occurrence: JP)
  Receive Date: 20171110
  Receipt Date: 20171122
  Transmission Date: 20180321
  Serious: Yes (Hospitalization)
  Sender: FDA-Public Use
  Company Number: JP-ALLERGAN-1763151US

PATIENT

DRUGS (18)
  1. DEPAKENE [Concomitant]
     Active Substance: VALPROIC ACID
     Dosage: UNK
     Dates: start: 20130328, end: 20170929
  2. JANUVIA [Concomitant]
     Active Substance: SITAGLIPTIN PHOSPHATE
     Dosage: UNK
     Dates: start: 20130327, end: 20170929
  3. AMLODIN [Concomitant]
     Active Substance: AMLODIPINE BESYLATE
     Indication: PRODUCT USED FOR UNKNOWN INDICATION
     Dosage: UNK
     Route: 065
     Dates: start: 20130327, end: 20170929
  4. AMBROXOL HYDROCHLORIDE [Concomitant]
     Active Substance: AMBROXOL HYDROCHLORIDE
     Dosage: UNK
     Dates: start: 20140516, end: 20170929
  5. MEMANTINE HCL - BP [Suspect]
     Active Substance: MEMANTINE
     Indication: DEMENTIA ALZHEIMER^S TYPE
     Dosage: 5 MG, UNK
     Route: 048
     Dates: start: 20170207, end: 20170214
  6. OLMETEC [Concomitant]
     Active Substance: OLMESARTAN MEDOXOMIL
     Indication: PRODUCT USED FOR UNKNOWN INDICATION
     Dosage: UNK
     Route: 065
     Dates: start: 20130327, end: 20170929
  7. URSODEOXYCHOLIC ACID [Concomitant]
     Active Substance: URSODIOL
     Dosage: UNK
     Dates: start: 20130327, end: 20170929
  8. MAGNESIUM OXIDE. [Concomitant]
     Active Substance: MAGNESIUM OXIDE
     Dosage: UNK
     Dates: start: 20130327, end: 20170929
  9. MEMANTINE HCL - BP [Suspect]
     Active Substance: MEMANTINE
     Dosage: 20 MG, QD
     Route: 048
     Dates: start: 20170228, end: 20170929
  10. CAMOSTAT MESILATE [Concomitant]
     Active Substance: CAMOSTAT MESYLATE
     Dosage: UNK
     Dates: start: 20130327, end: 20170929
  11. GENINAX [Concomitant]
     Active Substance: GARENOXACIN MESYLATE
     Dosage: UNK
     Dates: start: 20170927, end: 20170929
  12. TULOBUTEROL [Concomitant]
     Active Substance: TULOBUTEROL
     Dosage: UNK
     Dates: start: 20140516, end: 20170929
  13. TARIVID [Concomitant]
     Active Substance: OFLOXACIN
     Dosage: UNK
     Dates: start: 20170302, end: 20170929
  14. TETRAMIDE [Concomitant]
     Active Substance: MIANSERIN
     Dosage: UNK
     Dates: start: 20130613, end: 20170929
  15. MEMANTINE HCL - BP [Suspect]
     Active Substance: MEMANTINE
     Dosage: 15 MG, QD
     Route: 048
     Dates: start: 20170221, end: 20170228
  16. MEMANTINE HCL - BP [Suspect]
     Active Substance: MEMANTINE
     Dosage: 10 MG, QD
     Route: 048
     Dates: start: 20170214, end: 20170221
  17. CRAVIT [Concomitant]
     Active Substance: LEVOFLOXACIN
     Indication: PRODUCT USED FOR UNKNOWN INDICATION
     Route: 065
  18. YOKUKANSAN [Concomitant]
     Active Substance: HERBALS
     Dosage: UNK
     Dates: start: 20170925, end: 20170929

REACTIONS (1)
  - Rhabdomyolysis [Recovered/Resolved]
